FAERS Safety Report 8304041-3 (Version None)
Quarter: 2012Q2

REPORT INFORMATION
  Report Type: 
  Country: None (occurrence: None)
  Receive Date: 20120418
  Receipt Date: 20120406
  Transmission Date: 20120825
  Serious: Yes (Other)
  Sender: FDA-Public Use
  Company Number: 1251349

PATIENT
  Age: 57 Year
  Sex: Female
  Weight: 78.9 kg

DRUGS (1)
  1. CARBOPLATIN [Suspect]
     Indication: LUNG NEOPLASM MALIGNANT
     Dosage: 227 MG, Q3W,  INTRAVENOUS (NOT OTHERWISE SPECIFIED)
     Route: 042
     Dates: start: 20120320

REACTIONS (9)
  - LIP SWELLING [None]
  - CHEST DISCOMFORT [None]
  - INFUSION RELATED REACTION [None]
  - HYPERSENSITIVITY [None]
  - DYSPNOEA [None]
  - ERYTHEMA [None]
  - PRURITUS [None]
  - OXYGEN SATURATION DECREASED [None]
  - PHARYNGEAL OEDEMA [None]
